FAERS Safety Report 10934856 (Version 1)
Quarter: 2015Q1

REPORT INFORMATION
  Report Type: Spontaneous
  Country: US (occurrence: US)
  Receive Date: 20150320
  Receipt Date: 20150320
  Transmission Date: 20150721
  Serious: Yes (Death)
  Sender: FDA-Public Use
  Company Number: US-CIPLA LTD.-2015US02210

PATIENT

DRUGS (5)
  1. VINYLDENE CHLORIDE [Suspect]
     Active Substance: 1,1-DICHLOROETHYLENE
  2. SERTRALINE [Suspect]
     Active Substance: SERTRALINE HYDROCHLORIDE
  3. CHLORPHENIRAMINE [Suspect]
     Active Substance: CHLORPHENIRAMINE
  4. DEXTROMETHORPHAN [Suspect]
     Active Substance: DEXTROMETHORPHAN
  5. ETHANOL [Suspect]
     Active Substance: ALCOHOL

REACTIONS (2)
  - Drug abuse [Fatal]
  - Exposure via ingestion [None]
